FAERS Safety Report 20481408 (Version 1)
Quarter: 2022Q1

REPORT INFORMATION
  Report Type: Spontaneous
  Country: US (occurrence: None)
  Receive Date: 20220216
  Receipt Date: 20220216
  Transmission Date: 20220423
  Serious: No
  Sender: FDA-Public Use
  Company Number: 2022A061097

PATIENT
  Sex: Male
  Weight: 108.9 kg

DRUGS (1)
  1. SYMBICORT [Suspect]
     Active Substance: BUDESONIDE\FORMOTEROL FUMARATE DIHYDRATE
     Indication: Pulmonary congestion
     Dosage: 160/4.5 2 PUFFS, TWO TIMES A DAY
     Route: 055

REACTIONS (3)
  - Tooth injury [Unknown]
  - Tooth loss [Unknown]
  - Off label use [Unknown]
